FAERS Safety Report 7640100-6 (Version None)
Quarter: 2011Q3

REPORT INFORMATION
  Report Type: 
  Country: None (occurrence: None)
  Receive Date: 20110728
  Receipt Date: 20110719
  Transmission Date: 20111222
  Serious: Yes (Death, Hospitalization, Other)
  Sender: FDA-Public Use
  Company Number: BR-AMGEN-BRASP2011035222

PATIENT
  Age: 55 Year
  Sex: Female

DRUGS (2)
  1. ENBREL [Suspect]
     Indication: RHEUMATOID ARTHRITIS
     Dosage: 25 MG, 2X/WEEK
     Route: 058
     Dates: start: 20080101
  2. METHOTREXATE SODIUM [Suspect]
     Dosage: UNK

REACTIONS (5)
  - PNEUMONIA [None]
  - LOWER LIMB FRACTURE [None]
  - RIB FRACTURE [None]
  - FALL [None]
  - PNEUMOTHORAX [None]
